FAERS Safety Report 14871824 (Version 1)
Quarter: 2018Q2

REPORT INFORMATION
  Report Type: Spontaneous
  Country: US (occurrence: US)
  Receive Date: 20180509
  Receipt Date: 20180509
  Transmission Date: 20180711
  Serious: Yes (Other)
  Sender: FDA-Public Use
  Company Number: US-BAYER-2018-087505

PATIENT
  Age: 79 Year
  Sex: Male
  Weight: 73 kg

DRUGS (1)
  1. COPPERTONE SPORT SUNSCREEN SPF 50 [Suspect]
     Active Substance: AVOBENZONE\HOMOSALATE\OCTISALATE\OCTOCRYLENE\OXYBENZONE
     Indication: THERAPEUTIC SKIN CARE TOPICAL
     Dosage: UNK DF, UNK
     Route: 061
     Dates: start: 201611, end: 201805

REACTIONS (2)
  - Expired product administered [Unknown]
  - Malignant melanoma [Recovered/Resolved]

NARRATIVE: CASE EVENT DATE: 201611
